FAERS Safety Report 5987135-7 (Version None)
Quarter: 2008Q4

REPORT INFORMATION
  Report Type: 
  Country: None (occurrence: None)
  Receive Date: 20081209
  Receipt Date: 20081202
  Transmission Date: 20090506
  Serious: Yes (Life-Threatening, Hospitalization)
  Sender: FDA-Public Use
  Company Number: MX-JNJFOC-20081106116

PATIENT
  Sex: Male
  Weight: 80 kg

DRUGS (9)
  1. TMC114 [Suspect]
     Route: 048
  2. TMC114 [Suspect]
     Indication: HIV INFECTION
     Route: 048
  3. NORVIR [Suspect]
     Indication: HIV INFECTION
     Route: 048
  4. TRUVADA [Suspect]
     Indication: HIV INFECTION
     Route: 048
  5. GLUCOSAMINE SULPHATE [Concomitant]
     Indication: MEDICAL DIET
     Route: 048
  6. ALUMINUM HYDROXIDE GEL [Concomitant]
     Indication: DYSPEPSIA
     Route: 048
  7. PHARMATON [Concomitant]
     Route: 048
  8. CLOROIMIPRAMINE [Concomitant]
     Route: 048
  9. ASTEMIZOLE [Concomitant]
     Route: 048

REACTIONS (1)
  - DERMATITIS BULLOUS [None]
